FAERS Safety Report 11583264 (Version 1)
Quarter: 2015Q3

REPORT INFORMATION
  Report Type: Spontaneous
  Country: US (occurrence: None)
  Receive Date: 20150930
  Receipt Date: 20150930
  Transmission Date: 20151125
  Serious: No
  Sender: FDA-Public Use
  Company Number: None

PATIENT
  Age: 56 Year
  Sex: Male
  Weight: 102.06 kg

DRUGS (6)
  1. HYDROCODONE BITARTRATE AND ACETAMINOPHEN [Suspect]
     Active Substance: ACETAMINOPHEN\HYDROCODONE BITARTRATE
     Indication: PAIN IN EXTREMITY
     Route: 048
     Dates: start: 20150904, end: 20150909
  2. PAIN MEDS [Concomitant]
     Active Substance: UNSPECIFIED INGREDIENT
  3. HCTZ [Concomitant]
     Active Substance: HYDROCHLOROTHIAZIDE
  4. GAS-EX [Concomitant]
  5. LISINIPRIL 5MG [Concomitant]
     Active Substance: LISINOPRIL
  6. SLEEPING AID [Concomitant]

REACTIONS (10)
  - Malaise [None]
  - Insomnia [None]
  - Faeces discoloured [None]
  - Abdominal distension [None]
  - Dyspepsia [None]
  - Burning sensation [None]
  - Eructation [None]
  - Product substitution issue [None]
  - Diarrhoea [None]
  - Abdominal pain upper [None]

NARRATIVE: CASE EVENT DATE: 20150904
